FAERS Safety Report 23917989 (Version 1)
Quarter: 2024Q2

REPORT INFORMATION
  Report Type: Spontaneous
  Country: IT (occurrence: IT)
  Receive Date: 20240530
  Receipt Date: 20240530
  Transmission Date: 20240716
  Serious: Yes (Hospitalization, Other)
  Sender: FDA-Public Use
  Company Number: IT-MINISAL02-985689

PATIENT
  Age: 86 Year
  Sex: Female

DRUGS (6)
  1. LORAZEPAM [Suspect]
     Active Substance: LORAZEPAM
     Indication: Product used for unknown indication
     Dosage: 17.5 MILLIGRAM, 1 TOTAL (LORAZEPAM 2,5 MG: 7 COMPRESSE)
     Route: 048
     Dates: start: 20240116, end: 20240116
  2. MIRTAZAPINE [Suspect]
     Active Substance: MIRTAZAPINE
     Indication: Product used for unknown indication
     Dosage: 210 MILLIGRAM, 1 TOTAL (MIRTAZAPINA 30 MG: 7 COMPRESSE.)
     Route: 048
     Dates: start: 20240116, end: 20240116
  3. ASPIRIN [Suspect]
     Active Substance: ASPIRIN
     Indication: Product used for unknown indication
     Dosage: 700 MILLIGRAM, 1 TOTAL (ASA 100 MG: 7 COMPRESSE)
     Route: 048
     Dates: start: 20240116, end: 20240116
  4. LEVOTHYROXINE SODIUM [Suspect]
     Active Substance: LEVOTHYROXINE SODIUM
     Indication: Product used for unknown indication
     Dosage: 525 MICROGRAM, 1 TOTAL (EUTIROX 75 MCG: 7 COMPRESSE)
     Route: 048
     Dates: start: 20240116, end: 20240116
  5. DULOXETINE [Suspect]
     Active Substance: DULOXETINE
     Indication: Product used for unknown indication
     Dosage: 420 MILLIGRAM, 1 TOTAL (DULOXETINA 60 MG: 7 COMPRESSE)
     Route: 048
     Dates: start: 20240116, end: 20240116
  6. AMLODIPINE\INDAPAMIDE\PERINDOPRIL [Suspect]
     Active Substance: AMLODIPINE\INDAPAMIDE\PERINDOPRIL
     Indication: Product used for unknown indication
     Dosage: 7 DOSAGE FORM, 1 TOTAL (TRIPLIAM 5/1.25/5 MG: 7 COMPRESSE)
     Route: 048
     Dates: start: 20240116, end: 20240116

REACTIONS (2)
  - Psychomotor skills impaired [Unknown]
  - Substance abuse [Unknown]

NARRATIVE: CASE EVENT DATE: 20240116
